FAERS Safety Report 6569867-5 (Version None)
Quarter: 2010Q1

REPORT INFORMATION
  Report Type: 
  Country: None (occurrence: None)
  Receive Date: 20100204
  Receipt Date: 20100125
  Transmission Date: 20100710
  Serious: Yes (Hospitalization, Other)
  Sender: FDA-Public Use
  Company Number: PHEH2009US15385

PATIENT
  Sex: Male

DRUGS (7)
  1. EXJADE [Suspect]
     Indication: LYMPHATIC DISORDER
     Dosage: 4000 MG DAILY
     Route: 048
     Dates: start: 20080512
  2. EXJADE [Suspect]
     Dosage: 3 GM DAILY
     Route: 048
     Dates: start: 20080603
  3. CYCLOSPORINE [Concomitant]
     Dosage: UNK
     Route: 048
  4. LASIX [Concomitant]
     Dosage: UNK
     Route: 048
  5. DIGOXIN [Concomitant]
     Dosage: UNK
     Route: 048
  6. GLIMEPIRIDE [Concomitant]
     Dosage: UNK
     Route: 048
  7. HYDROCHLOROTHIAZIDE [Concomitant]
     Dosage: UNK
     Route: 048

REACTIONS (2)
  - BLOOD GLUCOSE DECREASED [None]
  - HYPOGLYCAEMIA [None]
